FAERS Safety Report 5061932-7 (Version None)
Quarter: 2006Q3

REPORT INFORMATION
  Report Type: 
  Country: None (occurrence: None)
  Receive Date: 20060726
  Receipt Date: 20060719
  Transmission Date: 20061208
  Serious: Yes (Life-Threatening, Hospitalization)
  Sender: FDA-Public Use
  Company Number: PHBS2006JP10890

PATIENT
  Age: 73 Year
  Sex: Female

DRUGS (2)
  1. VOLTAREN [Suspect]
     Indication: SCIATICA
     Dosage: 3 DF/DAY
     Route: 054
     Dates: start: 20060106, end: 20060101
  2. SORELMON [Suspect]
     Indication: SCIATICA
     Route: 048
     Dates: start: 20060106, end: 20060101

REACTIONS (11)
  - DEPRESSED LEVEL OF CONSCIOUSNESS [None]
  - DISSEMINATED INTRAVASCULAR COAGULATION [None]
  - HEPATIC FUNCTION ABNORMAL [None]
  - HYPOXIA [None]
  - JAUNDICE [None]
  - MULTI-ORGAN FAILURE [None]
  - NECROTISING FASCIITIS [None]
  - RENAL FAILURE [None]
  - SEPSIS [None]
  - SOFT TISSUE INFLAMMATION [None]
  - VENTRICULAR EXTRASYSTOLES [None]
